FAERS Safety Report 21081930 (Version 1)
Quarter: 2022Q3

REPORT INFORMATION
  Report Type: Spontaneous
  Country: DE (occurrence: DE)
  Receive Date: 20220714
  Receipt Date: 20220714
  Transmission Date: 20221027
  Serious: Yes (Death, Congenital Anomaly)
  Sender: FDA-Public Use
  Company Number: DE-EMBRYOTOX-202120935

PATIENT
  Sex: Female
  Weight: .485 kg

DRUGS (2)
  1. LAMOTRIGINE [Suspect]
     Active Substance: LAMOTRIGINE
     Indication: Epilepsy
     Dosage: 1200 MILLIGRAM, QD (1200 [MG/D (BIS 200) ]
     Route: 064
     Dates: start: 20210124, end: 20210628
  2. FOLIC ACID [Concomitant]
     Active Substance: FOLIC ACID
     Indication: Prophylaxis of neural tube defect
     Dosage: UNK
     Route: 064
     Dates: start: 20210124, end: 20210628

REACTIONS (3)
  - Spina bifida [Fatal]
  - Arnold-Chiari malformation [Fatal]
  - Foetal exposure during pregnancy [Unknown]
